FAERS Safety Report 6293121-2 (Version None)
Quarter: 2009Q3

REPORT INFORMATION
  Report Type: 
  Country: None (occurrence: None)
  Receive Date: 20090729
  Receipt Date: 20090720
  Transmission Date: 20100115
  Serious: Yes (Disabling, Other)
  Sender: FDA-Public Use
  Company Number: ADR10622009

PATIENT
  Age: 63 Year
  Sex: Female

DRUGS (5)
  1. AMLODIPINE [Suspect]
     Indication: HYPERTENSION
     Dosage: 5 MG ONCE A DAY, ORAL
     Route: 048
     Dates: start: 20071127, end: 20080105
  2. PREDNISOLONE [Concomitant]
  3. CANDESARTAN CILEXETIL [Concomitant]
  4. CYANOCOBALAMIN [Concomitant]
  5. FUROSEMIDE [Concomitant]

REACTIONS (7)
  - ANXIETY [None]
  - DEPRESSED MOOD [None]
  - DEPRESSION [None]
  - FEELING COLD [None]
  - SUICIDAL IDEATION [None]
  - TINNITUS [None]
  - TREMOR [None]
